FAERS Safety Report 9548079 (Version 1)
Quarter: 2013Q3

REPORT INFORMATION
  Report Type: Spontaneous
  Country: US (occurrence: US)
  Receive Date: 20130924
  Receipt Date: 20130924
  Transmission Date: 20140515
  Serious: No
  Sender: FDA-Public Use
  Company Number: US-PURDUE-USA-2011-0072801

PATIENT
  Sex: Male

DRUGS (1)
  1. MS CONTIN TABLETS [Suspect]
     Indication: PAIN
     Dosage: 60 MG, TID
     Route: 048

REACTIONS (5)
  - Drug withdrawal syndrome [Unknown]
  - Amnesia [Unknown]
  - Chills [Unknown]
  - Erectile dysfunction [Unknown]
  - Constipation [Unknown]
